FAERS Safety Report 22114350 (Version 2)
Quarter: 2023Q1

REPORT INFORMATION
  Report Type: Report from Study
  Country: CA (occurrence: CA)
  Receive Date: 20230320
  Receipt Date: 20230329
  Transmission Date: 20230418
  Serious: Yes (Other)
  Sender: FDA-Public Use
  Company Number: CA-CHEMOCENTRYX, INC.-2023CACCXI0856

PATIENT

DRUGS (1)
  1. TAVNEOS [Suspect]
     Active Substance: AVACOPAN
     Indication: Anti-neutrophil cytoplasmic antibody positive vasculitis
     Dosage: 10 MG, 3 CAPSULES 2 TIMES A DAY (30  MG, 2 IN 1 D)
     Route: 048
     Dates: start: 20230210

REACTIONS (7)
  - Hypertension [Unknown]
  - Decreased appetite [Unknown]
  - Insomnia [Unknown]
  - Malaise [Unknown]
  - Fear [Unknown]
  - Psychotic disorder [Unknown]
  - Anxiety [Unknown]
